FAERS Safety Report 4479548-X (Version None)
Quarter: 2004Q4

REPORT INFORMATION
  Report Type: 
  Country: None (occurrence: None)
  Receive Date: 20041020
  Receipt Date: 20041012
  Transmission Date: 20050328
  Serious: Yes (Other)
  Sender: FDA-Public Use
  Company Number: PHBS2004JP13599

PATIENT
  Age: 76 Year
  Sex: Male

DRUGS (3)
  1. DIOVAN [Suspect]
     Indication: HYPERTENSION
     Dosage: 80 MG/DAY
     Route: 048
     Dates: start: 20030404, end: 20040902
  2. MUCOSOLVON [Concomitant]
     Dosage: 45 MG, UNK
     Route: 048
     Dates: start: 20031017, end: 20040902
  3. CEPHADOL [Concomitant]
     Dosage: 75 MG, UNK
     Route: 048
     Dates: start: 20040201

REACTIONS (1)
  - LICHEN PLANUS [None]
